FAERS Safety Report 5574669-2 (Version None)
Quarter: 2007Q4

REPORT INFORMATION
  Report Type: 
  Country: None (occurrence: None)
  Receive Date: 20071226
  Receipt Date: 20071226
  Transmission Date: 20080405
  Serious: No
  Sender: FDA-Public Use
  Company Number: None

PATIENT
  Age: 69 Year
  Sex: Male

DRUGS (2)
  1. METOCLOPRAMIDE [Suspect]
     Dosage: 5MG BID PO
     Route: 048
     Dates: start: 20070911, end: 20071004
  2. TRAZODONE HCL [Suspect]
     Dosage: 200MG HS PO
     Route: 048
     Dates: start: 20070706, end: 20071004

REACTIONS (1)
  - CONFUSIONAL STATE [None]
